FAERS Safety Report 18479029 (Version 9)
Quarter: 2022Q4

REPORT INFORMATION
  Report Type: Report from Study
  Country: US (occurrence: US)
  Receive Date: 20201109
  Receipt Date: 20221020
  Transmission Date: 20230113
  Serious: Yes (Hospitalization, Other)
  Sender: FDA-Public Use
  Company Number: US-BOEHRINGERINGELHEIM-2020-BI-060319

PATIENT
  Age: 38 Year
  Sex: Female

DRUGS (3)
  1. OFEV [Suspect]
     Active Substance: NINTEDANIB
     Indication: Pulmonary fibrosis
     Route: 048
     Dates: start: 20201028
  2. OFEV [Suspect]
     Active Substance: NINTEDANIB
     Indication: Systemic scleroderma
  3. OFEV [Suspect]
     Active Substance: NINTEDANIB
     Indication: Interstitial lung disease

REACTIONS (13)
  - COVID-19 [Not Recovered/Not Resolved]
  - Chest pain [Unknown]
  - Appendicitis [Unknown]
  - Diarrhoea [Recovered/Resolved]
  - Diarrhoea [Not Recovered/Not Resolved]
  - Anxiety [Unknown]
  - Abdominal discomfort [Not Recovered/Not Resolved]
  - Weight decreased [Not Recovered/Not Resolved]
  - Illness [Unknown]
  - Pyrexia [Unknown]
  - Nausea [Not Recovered/Not Resolved]
  - Chills [Unknown]
  - Cough [Unknown]

NARRATIVE: CASE EVENT DATE: 20201001
